FAERS Safety Report 4694714-6 (Version None)
Quarter: 2005Q2

REPORT INFORMATION
  Report Type: 
  Country: None (occurrence: None)
  Receive Date: 20050617
  Receipt Date: 20050603
  Transmission Date: 20051028
  Serious: Yes (Hospitalization)
  Sender: FDA-Public Use
  Company Number: 231929K05USA

PATIENT
  Age: 50 Year
  Sex: Male
  Weight: 80.7403 kg

DRUGS (5)
  1. REBIF [Suspect]
     Indication: MULTIPLE SCLEROSIS
     Dosage: 44 MCG, 3 IN 1 WEEKS, SUBCUTANEOUS
     Route: 058
     Dates: start: 20040201, end: 20050427
  2. NOVANTRONE [Suspect]
     Indication: MULTIPLE SCLEROSIS
     Dosage: 1 IN 3 MONTHS, INTRAVENOUS
     Route: 042
     Dates: start: 20030101, end: 20031201
  3. AMANTADINE HCL [Concomitant]
  4. ESCITALOPRAM OXALATE [Concomitant]
  5. ALEVE [Concomitant]

REACTIONS (5)
  - CARDIOMYOPATHY [None]
  - CORONARY ARTERY OCCLUSION [None]
  - DEPRESSION [None]
  - MYOCARDIAL INFARCTION [None]
  - STENT OCCLUSION [None]
